FAERS Safety Report 7272155-5 (Version None)
Quarter: 2010Q4

REPORT INFORMATION
  Report Type: 
  Country: None (occurrence: None)
  Receive Date: 20101210
  Receipt Date: 20101020
  Transmission Date: 20110411
  Serious: Yes (Other)
  Sender: FDA-Public Use
  Company Number: US-003982

PATIENT
  Sex: Female
  Weight: 101.6057 kg

DRUGS (6)
  1. TRANEXAMIC ACID [Suspect]
     Indication: MENORRHAGIA
     Dates: end: 20101011
  2. LOESTRIN 24 FE [Suspect]
     Indication: PRODUCT USED FOR UNKNOWN INDICATION
  3. ESTROGEN NOS [Concomitant]
  4. CHROMAGEN /00555001/ [Concomitant]
  5. OXYCODONE [Concomitant]
  6. IZOFRAN /00955301/ [Concomitant]

REACTIONS (2)
  - DEEP VEIN THROMBOSIS [None]
  - PULMONARY EMBOLISM [None]
